FAERS Safety Report 25672065 (Version 1)
Quarter: 2025Q3

REPORT INFORMATION
  Report Type: Spontaneous
  Country: GB (occurrence: GB)
  Receive Date: 20250812
  Receipt Date: 20250812
  Transmission Date: 20251020
  Serious: Yes (Other)
  Sender: PFIZER
  Company Number: GB-MLMSERVICE-20250729-PI592889-00150-1

PATIENT
  Age: 59 Year
  Sex: Female

DRUGS (1)
  1. FLUCONAZOLE [Suspect]
     Active Substance: FLUCONAZOLE
     Indication: Urinary tract candidiasis
     Dosage: 400 MG, 1X/DAY

REACTIONS (2)
  - Electrocardiogram QT prolonged [Unknown]
  - Palpitations [Unknown]
